FAERS Safety Report 20701738 (Version 1)
Quarter: 2022Q2

REPORT INFORMATION
  Report Type: Spontaneous
  Country: US (occurrence: None)
  Receive Date: 20220411
  Receipt Date: 20220411
  Transmission Date: 20220720
  Serious: Yes (Death)
  Sender: FDA-Public Use
  Company Number: None

PATIENT
  Age: 48 Year
  Sex: Female
  Weight: 98.1 kg

DRUGS (14)
  1. CEFTRIAXONE [Suspect]
     Active Substance: CEFTRIAXONE
     Indication: Urinary tract infection
     Dosage: OTHER FREQUENCY : NOW;?
     Route: 041
  2. CLONIDINE [Concomitant]
     Active Substance: CLONIDINE
  3. ERGOCALCIFEROL [Concomitant]
     Active Substance: ERGOCALCIFEROL
  4. ferrous sulface 325mg [Concomitant]
  5. INSULIN ASPART [Concomitant]
     Active Substance: INSULIN ASPART
  6. INSULIN DETEMIR [Concomitant]
     Active Substance: INSULIN DETEMIR
  7. HYDRALAZINE [Concomitant]
     Active Substance: HYDRALAZINE HYDROCHLORIDE
  8. medroxyprogesterone 150mg [Concomitant]
  9. SPIRONOLACTONE [Concomitant]
     Active Substance: SPIRONOLACTONE
  10. SODIUM CHLORIDE [Concomitant]
     Active Substance: SODIUM CHLORIDE
     Dates: start: 20220409, end: 20220410
  11. ASPIRIN [Concomitant]
     Active Substance: ASPIRIN
     Dates: start: 20181113
  12. AMLODIPINE [Concomitant]
     Active Substance: AMLODIPINE BESYLATE
     Dates: start: 20210127
  13. bumetanide 2mg [Concomitant]
  14. CARVEDILOL [Concomitant]
     Active Substance: CARVEDILOL

REACTIONS (5)
  - Infusion related reaction [None]
  - Flushing [None]
  - Aphasia [None]
  - Restlessness [None]
  - Therapy cessation [None]

NARRATIVE: CASE EVENT DATE: 20220410
